FAERS Safety Report 18889996 (Version 3)
Quarter: 2021Q1

REPORT INFORMATION
  Report Type: Report from Study
  Country: BR (occurrence: BR)
  Receive Date: 20210213
  Receipt Date: 20210320
  Transmission Date: 20210420
  Serious: Yes (Other)
  Sender: FDA-Public Use
  Company Number: NVSC2020BR280108

PATIENT
  Sex: Female

DRUGS (10)
  1. FASLODEX [Concomitant]
     Active Substance: FULVESTRANT
     Indication: PRODUCT USED FOR UNKNOWN INDICATION
     Dosage: UNK (4 OR 5 YEARS AGO)
     Route: 065
     Dates: start: 2016, end: 202009
  2. FEMARA [Suspect]
     Active Substance: LETROZOLE
     Indication: PRODUCT USED FOR UNKNOWN INDICATION
     Dosage: UNK
     Route: 065
     Dates: start: 202011
  3. KISQALI [Suspect]
     Active Substance: RIBOCICLIB
     Indication: BREAST CANCER METASTATIC
     Dosage: 3 DF, QD
     Route: 065
     Dates: start: 20201017
  4. KISQALI [Suspect]
     Active Substance: RIBOCICLIB
     Dosage: UNK
     Route: 065
     Dates: start: 20210311
  5. KISQALI [Suspect]
     Active Substance: RIBOCICLIB
     Dosage: UNK UNK, BID
     Route: 065
     Dates: start: 202012
  6. PANTOPRAZOLE [Suspect]
     Active Substance: PANTOPRAZOLE
     Indication: PRODUCT USED FOR UNKNOWN INDICATION
     Dosage: UNK
     Route: 065
  7. AROMASIN [Concomitant]
     Active Substance: EXEMESTANE
     Indication: PRODUCT USED FOR UNKNOWN INDICATION
     Dosage: UNK
     Route: 065
     Dates: start: 2017
  8. TAMOXIFEN [Suspect]
     Active Substance: TAMOXIFEN
     Indication: PRODUCT USED FOR UNKNOWN INDICATION
     Dosage: UNK
     Route: 065
     Dates: start: 2016
  9. KISQALI [Suspect]
     Active Substance: RIBOCICLIB
     Dosage: UNK UNK, TID
     Route: 065
     Dates: start: 20201027
  10. XGEVA [Concomitant]
     Active Substance: DENOSUMAB
     Indication: PRODUCT USED FOR UNKNOWN INDICATION
     Dosage: UNK
     Route: 065
     Dates: start: 2017, end: 2019

REACTIONS (17)
  - Nausea [Unknown]
  - Metastases to spine [Unknown]
  - Pain [Recovered/Resolved]
  - Dyspepsia [Unknown]
  - Pain [Unknown]
  - Drug intolerance [Unknown]
  - Metastases to bone [Unknown]
  - Malaise [Unknown]
  - Anxiety [Unknown]
  - Neoplasm [Unknown]
  - Bone cancer [Unknown]
  - Condition aggravated [Unknown]
  - Renal pain [Unknown]
  - Retching [Unknown]
  - Ill-defined disorder [Unknown]
  - Abdominal discomfort [Unknown]
  - Gastritis [Unknown]

NARRATIVE: CASE EVENT DATE: 2016
